FAERS Safety Report 6163287-3 (Version None)
Quarter: 2009Q2

REPORT INFORMATION
  Report Type: 
  Country: None (occurrence: None)
  Receive Date: 20090422
  Receipt Date: 20090420
  Transmission Date: 20091009
  Serious: Yes (Other)
  Sender: FDA-Public Use
  Company Number: DE-B.I. PHARMACEUTICALS,INC./RIDGEFIELD-2009-DE-03210DE

PATIENT
  Age: 20 Month
  Sex: Female
  Weight: 13 kg

DRUGS (4)
  1. MICARDIS HCT [Suspect]
     Dosage: 1ANZ
     Route: 048
  2. METOHEXAL RETARD [Suspect]
     Dosage: 1ANZ
     Route: 048
  3. ACETAMINOPHEN [Suspect]
     Dosage: 1ANZ
     Route: 048
  4. RAMIPRIL AL 5 [Suspect]
     Dosage: 1ANZ
     Route: 048

REACTIONS (1)
  - MEDICATION ERROR [None]
